FAERS Safety Report 10554590 (Version 3)
Quarter: 2014Q4

REPORT INFORMATION
  Report Type: Report from Study
  Country: TW (occurrence: TW)
  Receive Date: 20141030
  Receipt Date: 20141201
  Transmission Date: 20150529
  Serious: Yes (Hospitalization)
  Sender: FDA-Public Use
  Company Number: TW-ABBVIE-14K-153-1285158-00

PATIENT
  Age: 52 Year
  Sex: Female
  Weight: 70 kg

DRUGS (1)
  1. HUMIRA [Suspect]
     Active Substance: ADALIMUMAB
     Indication: RHEUMATOID ARTHRITIS
     Route: 058
     Dates: start: 20120215, end: 20140819

REACTIONS (15)
  - Pyrexia [Recovered/Resolved]
  - Electrocardiogram T wave inversion [Recovered/Resolved]
  - Computerised tomogram abdomen abnormal [Recovered/Resolved]
  - Lung infiltration [Recovered/Resolved]
  - Colitis [Recovered/Resolved]
  - Diarrhoea [Recovered/Resolved]
  - Ascites [Recovered/Resolved]
  - Candida infection [Recovered/Resolved]
  - Bone erosion [Recovered/Resolved]
  - Spinal osteoarthritis [Recovered/Resolved]
  - X-ray of pelvis and hip abnormal [Recovered/Resolved]
  - Abdominal pain [Recovered/Resolved]
  - Vertebral osteophyte [Recovered/Resolved]
  - Myocardial ischaemia [Recovered/Resolved]
  - Red blood cell count decreased [Recovered/Resolved]

NARRATIVE: CASE EVENT DATE: 201409
